FAERS Safety Report 5473309-0 (Version None)
Quarter: 2007Q4

REPORT INFORMATION
  Report Type: 
  Country: None (occurrence: None)
  Receive Date: 20071001
  Receipt Date: 20070921
  Transmission Date: 20080405
  Serious: Yes (Death)
  Sender: FDA-Public Use
  Company Number: NL-AMGEN-US245224

PATIENT
  Sex: Female

DRUGS (14)
  1. ENBREL [Suspect]
     Indication: RHEUMATOID ARTHRITIS
     Dosage: LYOPHILIZED: 50 MG 1 TIME PER WEEK
     Route: 058
     Dates: start: 20060718, end: 20070613
  2. ENBREL [Suspect]
     Dosage: PFS: 50 MG 2 TIMES PER WEEK
     Route: 058
     Dates: start: 20070614
  3. OXYCONTIN [Concomitant]
     Indication: PAIN
  4. CIPROFLOXACIN [Concomitant]
  5. NOVONORM [Concomitant]
     Indication: DIABETES MELLITUS
     Dosage: 1 MG
  6. HYDROCHLOROTHIAZIDE [Concomitant]
     Indication: CARDIAC DISORDER
  7. ASCAL [Concomitant]
     Indication: CARDIAC DISORDER
  8. CALCICHEW [Concomitant]
     Indication: OSTEOPOROSIS
  9. IBANDRONATE SODIUM [Concomitant]
     Indication: OSTEOPOROSIS
     Dates: start: 20060629
  10. SERETIDE [Concomitant]
     Indication: ASTHMA
  11. ACENOCOUMAROL [Concomitant]
     Dosage: UNK
     Route: 058
  12. FLUNITRAZEPAM [Concomitant]
  13. NORVASC [Concomitant]
     Indication: CARDIAC DISORDER
  14. CODEINE SUL TAB [Concomitant]

REACTIONS (1)
  - ATYPICAL MYCOBACTERIAL INFECTION [None]
